FAERS Safety Report 7367318-4 (Version None)
Quarter: 2011Q1

REPORT INFORMATION
  Report Type: 
  Country: None (occurrence: None)
  Receive Date: 20110321
  Receipt Date: 20110321
  Transmission Date: 20110831
  Serious: Yes (Death)
  Sender: FDA-Public Use
  Company Number: None

PATIENT
  Age: 11 Year
  Sex: Male
  Weight: 36.2878 kg

DRUGS (1)
  1. TRIAD COMPANY ALCOHOL [Suspect]
     Indication: SURGERY
     Dosage: DAILY
     Dates: start: 20100324, end: 20100515

REACTIONS (4)
  - PRODUCT CONTAMINATION [None]
  - BACTERIAL INFECTION [None]
  - RESPIRATORY FAILURE [None]
  - NECROSIS [None]
